FAERS Safety Report 14526801 (Version 1)
Quarter: 2018Q1

REPORT INFORMATION
  Report Type: Spontaneous
  Country: US (occurrence: US)
  Receive Date: 20180213
  Receipt Date: 20180213
  Transmission Date: 20180509
  Serious: Yes (Other)
  Sender: FDA-Public Use
  Company Number: US-PFIZER INC-2018061934

PATIENT
  Age: 54 Year
  Sex: Female
  Weight: 63.5 kg

DRUGS (3)
  1. SINGULAIR [Concomitant]
     Active Substance: MONTELUKAST SODIUM
     Indication: ASTHMA
     Dosage: 10 MG, 1X/DAY
  2. QVAR [Concomitant]
     Active Substance: BECLOMETHASONE DIPROPIONATE
     Indication: ASTHMA
     Dosage: UNK
     Dates: end: 20171201
  3. VFEND [Suspect]
     Active Substance: VORICONAZOLE
     Indication: ASPERGILLUS INFECTION
     Dosage: 200MG TABLET, 1 TABLET TWICE DAILY BY MOUTH
     Route: 048
     Dates: start: 20171122, end: 20180124

REACTIONS (5)
  - Mycobacterium avium complex infection [Unknown]
  - Liver function test abnormal [Unknown]
  - Pollakiuria [Recovering/Resolving]
  - Renal impairment [Unknown]
  - Enzyme level increased [Unknown]
